FAERS Safety Report 4431978-8 (Version None)
Quarter: 2004Q3

REPORT INFORMATION
  Report Type: 
  Country: None (occurrence: None)
  Receive Date: 20040819
  Receipt Date: 20040810
  Transmission Date: 20050211
  Serious: Yes (Hospitalization)
  Sender: FDA-Public Use
  Company Number: FR-JNJFOC-20040803021

PATIENT
  Age: 69 Year
  Sex: Male

DRUGS (6)
  1. IMODIUM [Suspect]
     Dosage: ORAL
     Route: 048
     Dates: end: 20040712
  2. COLCHIMAX (COLCHIMAX) [Suspect]
     Dosage: ORAL
     Route: 048
     Dates: start: 20040610, end: 20040712
  3. NICARDIPINE HCL [Concomitant]
  4. DIAMICRON (GLICLAZIDE) [Concomitant]
  5. CELLCEPT [Concomitant]
  6. NEORAL [Concomitant]

REACTIONS (2)
  - ALANINE AMINOTRANSFERASE INCREASED [None]
  - ASPARTATE AMINOTRANSFERASE INCREASED [None]
